FAERS Safety Report 14805851 (Version 1)
Quarter: 2018Q2

REPORT INFORMATION
  Report Type: Spontaneous
  Country: ES (occurrence: ES)
  Receive Date: 20180425
  Receipt Date: 20180425
  Transmission Date: 20180711
  Serious: Yes (Life-Threatening, Hospitalization)
  Sender: FDA-Public Use
  Company Number: ES-TEVA-2018-ES-882351

PATIENT
  Age: 69 Year
  Sex: Female

DRUGS (7)
  1. METFORMIN [Suspect]
     Active Substance: METFORMIN HYDROCHLORIDE
     Indication: DIABETES MELLITUS
     Route: 065
  2. ATORVASTATINA (7400A) [Concomitant]
     Active Substance: ATORVASTATIN
     Route: 065
  3. RANITIDINA (2A) [Concomitant]
     Active Substance: RANITIDINE
     Route: 065
  4. MANITOL (1870A) [Suspect]
     Active Substance: MANNITOL
     Dosage: TWO JARS OF MANITOL
     Route: 065
     Dates: start: 20180127
  5. ACETAZOLAMIDA (226A) [Suspect]
     Active Substance: ACETAZOLAMIDE
     Indication: GLAUCOMA
     Route: 048
     Dates: start: 20180127, end: 20180205
  6. SITAGLIPTINA (8075A) [Suspect]
     Active Substance: SITAGLIPTIN
     Route: 065
  7. SEVOFLURANO PIRAMAL 100% [Suspect]
     Active Substance: SEVOFLURANE
     Indication: GENERAL ANAESTHESIA
     Dosage: 1,5 CAM   LIQUIDO PARA INHALACION DEL VAPOR EFG,1 FRASCO DE 250 ML (VIDRIO TIPO III)
     Route: 055
     Dates: start: 20180205, end: 20180205

REACTIONS (2)
  - Acidosis [Not Recovered/Not Resolved]
  - Cardio-respiratory arrest [Not Recovered/Not Resolved]

NARRATIVE: CASE EVENT DATE: 20180206
